FAERS Safety Report 8052734-8 (Version None)
Quarter: 2012Q1

REPORT INFORMATION
  Report Type: 
  Country: None (occurrence: None)
  Receive Date: 20120118
  Receipt Date: 20111220
  Transmission Date: 20120608
  Serious: Yes (Other)
  Sender: FDA-Public Use
  Company Number: MX-PFIZER INC-2012008386

PATIENT
  Sex: Female

DRUGS (1)
  1. MOTRIN [Suspect]
     Indication: DYSMENORRHOEA
     Dosage: UNK, AS NEEDED
     Route: 048
     Dates: start: 19980101

REACTIONS (3)
  - FIXED ERUPTION [None]
  - HYPERSENSITIVITY [None]
  - DERMATITIS BULLOUS [None]
